FAERS Safety Report 4339832-7 (Version None)
Quarter: 2004Q2

REPORT INFORMATION
  Report Type: 
  Country: None (occurrence: None)
  Receive Date: 20040416
  Receipt Date: 20040405
  Transmission Date: 20050107
  Serious: Yes (Hospitalization, Other)
  Sender: FDA-Public Use
  Company Number: US-JNJFOC-20040400757

PATIENT
  Sex: Male
  Weight: 68.04 kg

DRUGS (25)
  1. INFLIXIMAB [Suspect]
     Route: 042
  2. INFLIXIMAB [Suspect]
     Indication: RHEUMATOID ARTHRITIS
     Route: 042
  3. PIOGLITAZONE HCL [Suspect]
     Indication: DRUG USE FOR UNKNOWN INDICATION
  4. ASPIRIN [Concomitant]
  5. ATACAND [Concomitant]
  6. GLIPIZIDE [Concomitant]
  7. CYTOXAN [Concomitant]
  8. SUCRALFATE [Concomitant]
  9. ADVAIR DISKUS 100/50 [Concomitant]
  10. ADVAIR DISKUS 100/50 [Concomitant]
  11. ACTONEL [Concomitant]
  12. TYLENOL PM [Concomitant]
  13. TYLENOL PM [Concomitant]
     Dosage: 2 TABLETS AT BEDTIME
  14. ZETIA [Concomitant]
  15. CALCIUM [Concomitant]
  16. NORVASC [Concomitant]
  17. MULTI-VITAMINS [Concomitant]
  18. MULTI-VITAMINS [Concomitant]
  19. MULTI-VITAMINS [Concomitant]
  20. MULTI-VITAMINS [Concomitant]
  21. MULTI-VITAMINS [Concomitant]
  22. MULTI-VITAMINS [Concomitant]
  23. MULTI-VITAMINS [Concomitant]
  24. MULTI-VITAMINS [Concomitant]
  25. FISH OIL [Concomitant]

REACTIONS (4)
  - ATRIOVENTRICULAR BLOCK COMPLETE [None]
  - CARDIAC FAILURE CONGESTIVE [None]
  - INAPPROPRIATE ANTIDIURETIC HORMONE SECRETION [None]
  - SICK SINUS SYNDROME [None]
